FAERS Safety Report 8348790-X (Version None)
Quarter: 2012Q2

REPORT INFORMATION
  Report Type: 
  Country: None (occurrence: None)
  Receive Date: 20120510
  Receipt Date: 20120503
  Transmission Date: 20120825
  Serious: No
  Sender: FDA-Public Use
  Company Number: US-PFIZER INC-2012109716

PATIENT
  Sex: Male

DRUGS (2)
  1. INLYTA [Suspect]
     Indication: RENAL CANCER
     Dosage: TWO CAPS (DAILY)
     Dates: start: 20120321
  2. INLYTA [Suspect]
     Dosage: ONE CAP A DAY

REACTIONS (1)
  - DRUG INTOLERANCE [None]
